FAERS Safety Report 13771836 (Version 8)
Quarter: 2021Q1

REPORT INFORMATION
  Report Type: Report from Study
  Country: NL (occurrence: NL)
  Receive Date: 20170720
  Receipt Date: 20210312
  Transmission Date: 20210419
  Serious: Yes (Hospitalization)
  Sender: FDA-Public Use
  Company Number: NL-ROCHE-1961758

PATIENT
  Age: 59 Year
  Sex: Female
  Weight: 60 kg

DRUGS (37)
  1. CETIRIZINE [Concomitant]
     Active Substance: CETIRIZINE HYDROCHLORIDE
     Dates: start: 20160217, end: 20160217
  2. PARACETAMOL [Concomitant]
     Active Substance: ACETAMINOPHEN
     Dosage: FOR FLU
     Dates: start: 20171027, end: 20171105
  3. AMLODIPINE [Concomitant]
     Active Substance: AMLODIPINE BESYLATE
     Indication: HYPERTENSION
     Dates: start: 20130425, end: 20171115
  4. FOLIC ACID. [Concomitant]
     Active Substance: FOLIC ACID
     Indication: BLOOD FOLATE DECREASED
     Dates: start: 20130729
  5. HYDROCOBAMINE [Concomitant]
     Active Substance: HYDROXOCOBALAMIN HYDROCHLORIDE
     Indication: VITAMIN B12 DECREASED
     Dates: start: 20121122
  6. METOPROLOL. [Concomitant]
     Active Substance: METOPROLOL
     Indication: TACHYCARDIA
     Dates: start: 20131025, end: 20131025
  7. AMOXICILLIN. [Concomitant]
     Active Substance: AMOXICILLIN
     Indication: INFLUENZA
     Dates: start: 20171030, end: 20171031
  8. OCRELIZUMAB. [Suspect]
     Active Substance: OCRELIZUMAB
     Indication: PRIMARY PROGRESSIVE MULTIPLE SCLEROSIS
     Dosage: TWO INTRAVENOUS (IV) INFUSIONS OF OCRELIZUMAB SEPARATED BY 14 DAYS IN EACH TREATMENT CYCLE OF 24 WEE
     Route: 042
     Dates: start: 20121122, end: 20160216
  9. PARACETAMOL [Concomitant]
     Active Substance: ACETAMINOPHEN
     Dates: start: 20180807
  10. BACLOFEN. [Concomitant]
     Active Substance: BACLOFEN
     Indication: MUSCLE SPASMS
     Dates: start: 20111005, end: 20150607
  11. BOTOX [Concomitant]
     Active Substance: ONABOTULINUMTOXINA
     Dates: start: 20161101, end: 20161101
  12. BOTOX [Concomitant]
     Active Substance: ONABOTULINUMTOXINA
     Dates: start: 20170510, end: 20170510
  13. FAMPYRA [Concomitant]
     Active Substance: DALFAMPRIDINE
     Dates: start: 20190913
  14. COLECALCIFEROL [Concomitant]
     Active Substance: CHOLECALCIFEROL
  15. BACLOFEN. [Concomitant]
     Active Substance: BACLOFEN
     Dosage: 20 MG
     Dates: start: 20150608
  16. AMOXYCILLIN [Concomitant]
     Active Substance: AMOXICILLIN
     Indication: INFLUENZA
     Dates: start: 20171030, end: 20171031
  17. OCRELIZUMAB. [Suspect]
     Active Substance: OCRELIZUMAB
     Indication: PRIMARY PROGRESSIVE MULTIPLE SCLEROSIS
     Dosage: TWO IV INFUSIONS OF OCRELIZUMAB 300 MG SEPARATED BY 14 DAYS FOR CYCLE 1 AND SINGLE IV INFUSION OF OC
     Route: 042
     Dates: start: 20160217
  18. FRAGMIN [Concomitant]
     Active Substance: DALTEPARIN SODIUM
     Dates: start: 20170702, end: 20170706
  19. LISINOPRIL. [Concomitant]
     Active Substance: LISINOPRIL
     Indication: HYPERTENSION
     Dates: start: 20191223, end: 20191227
  20. PARACETAMOL [Concomitant]
     Active Substance: ACETAMINOPHEN
     Dates: start: 20171027, end: 20171105
  21. BOTOX [Concomitant]
     Active Substance: ONABOTULINUMTOXINA
     Dates: start: 20170201, end: 20170201
  22. BOTOX [Concomitant]
     Active Substance: ONABOTULINUMTOXINA
     Dates: start: 20160420, end: 20160420
  23. BOTOX [Concomitant]
     Active Substance: ONABOTULINUMTOXINA
     Dosage: 11/SEP/2019, 29/MAY/2019 AND 07/AUG/2018?09/AUG/2018
     Dates: start: 20190306, end: 201903
  24. METOPROLOL. [Concomitant]
     Active Substance: METOPROLOL
     Dates: start: 20131026
  25. BOTOX [Concomitant]
     Active Substance: ONABOTULINUMTOXINA
     Dates: start: 20160728, end: 20160728
  26. TRIGYNON [Concomitant]
     Dates: start: 1984
  27. AMOXICILLIN. [Concomitant]
     Active Substance: AMOXICILLIN
     Dates: start: 20171101, end: 20171110
  28. METHYLPREDNISOLONE. [Concomitant]
     Active Substance: METHYLPREDNISOLONE
     Dosage: SUBSEQUENT DOSE (100 MG) RECEIVED ON: 02/MAR/2016, 06/DEC/2012,  07/NOV/2013, 08/AUG/2016, 09OCT/201
  29. DIVISUN [Concomitant]
     Active Substance: CHOLECALCIFEROL
     Indication: VITAMIN D DECREASED
     Dates: start: 20130729
  30. FAMPYRA [Concomitant]
     Active Substance: DALFAMPRIDINE
     Indication: GAIT DISTURBANCE
     Dates: start: 20160826, end: 201902
  31. METOPROLOL. [Concomitant]
     Active Substance: METOPROLOL
     Dates: start: 20200120
  32. NOSCAPINE [Concomitant]
     Active Substance: NOSCAPINE
     Indication: COUGH
     Dates: start: 20170610, end: 20170702
  33. CETIRIZINE [Concomitant]
     Active Substance: CETIRIZINE HYDROCHLORIDE
     Dates: start: 20170119, end: 20170119
  34. PARACETAMOL [Concomitant]
     Active Substance: ACETAMINOPHEN
     Indication: PNEUMONIA
     Dosage: SUBSEQUENT DOSE (1000 MG) RECEIVED ON: 02/MAR/2016, 06/DEC/2012,  07/NOV/2013, 08/AUG/2016, 09OCT/20
  35. PARACETAMOL [Concomitant]
     Active Substance: ACETAMINOPHEN
     Dosage: FOR PNEUMONIA
     Dates: start: 20170620, end: 20170626
  36. FAMPYRA [Concomitant]
     Active Substance: DALFAMPRIDINE
     Dates: start: 20190218, end: 20190909
  37. HYDROCOBAMINE [Concomitant]
     Active Substance: HYDROXOCOBALAMIN HYDROCHLORIDE
     Dates: start: 20130729

REACTIONS (1)
  - Pneumonia [Recovered/Resolved with Sequelae]

NARRATIVE: CASE EVENT DATE: 20170620
